FAERS Safety Report 5537739-0 (Version None)
Quarter: 2007Q4

REPORT INFORMATION
  Report Type: 
  Country: None (occurrence: None)
  Receive Date: 20071207
  Receipt Date: 20071127
  Transmission Date: 20080405
  Serious: Yes (Other)
  Sender: FDA-Public Use
  Company Number: GB-PFIZER INC-2007101548

PATIENT
  Age: 20 Year
  Sex: Male
  Weight: 73 kg

DRUGS (3)
  1. CHAMPIX [Suspect]
     Indication: SMOKING CESSATION THERAPY
     Route: 048
     Dates: start: 20070816, end: 20070819
  2. FLIXOTIDE ^ALLEN + HANBURYS^ [Concomitant]
     Indication: ASTHMA
     Route: 055
  3. ALBUTEROL [Concomitant]
     Indication: ASTHMA
     Route: 055

REACTIONS (3)
  - DEPRESSED MOOD [None]
  - DISORIENTATION [None]
  - MEMORY IMPAIRMENT [None]
